FAERS Safety Report 20249208 (Version 1)
Quarter: 2021Q4

REPORT INFORMATION
  Report Type: Spontaneous
  Country: BR (occurrence: BR)
  Receive Date: 20211229
  Receipt Date: 20211229
  Transmission Date: 20220303
  Serious: Yes (Hospitalization)
  Sender: FDA-Public Use
  Company Number: BR-ABBOTT-2021A-1342427

PATIENT
  Sex: Male
  Weight: 13.6 kg

DRUGS (5)
  1. CLARITHROMYCIN [Suspect]
     Active Substance: CLARITHROMYCIN
     Indication: Lung disorder
     Dosage: EVERY 12 HRS 7 A.M AND 7 P.M., PAT. USED DRUG FOR ABOUT 8 DAYS, UNIT DOSE: 25 MILLIGRAM/ML
     Route: 048
     Dates: start: 20211103, end: 202111
  2. CLARITHROMYCIN [Suspect]
     Active Substance: CLARITHROMYCIN
     Indication: Fatigue
  3. CLARITHROMYCIN [Suspect]
     Active Substance: CLARITHROMYCIN
     Indication: Lower respiratory tract congestion
  4. LORATADINE [Concomitant]
     Active Substance: LORATADINE
     Indication: Product used for unknown indication
  5. ALBUTEROL [Concomitant]
     Active Substance: ALBUTEROL
     Indication: Lung disorder
     Dates: start: 202111

REACTIONS (5)
  - Infection [Recovered/Resolved]
  - Increased bronchial secretion [Unknown]
  - Suspected product contamination [Unknown]
  - Pyrexia [Recovered/Resolved]
  - Drug ineffective [Unknown]

NARRATIVE: CASE EVENT DATE: 20211101
